FAERS Safety Report 7328773 (Version 4)
Quarter: 2014Q3

REPORT INFORMATION
  Report Type: Report from Study
  Country: JP (occurrence: JP)
  Receive Date: 20100323
  Receipt Date: 20140806
  Transmission Date: 20150326
  Serious: Yes (Hospitalization, Other)
  Sender: FDA-Public Use
  Company Number: PHHY2009JP37176

PATIENT
  Age: 72 Year
  Sex: Male

DRUGS (11)
  1. GASTER [Concomitant]
     Active Substance: FAMOTIDINE
     Dosage: 10 MG, UNK
     Route: 048
     Dates: start: 20111108
  2. TASIGNA [Suspect]
     Active Substance: NILOTINIB
     Dosage: 400 MG, PER DAY
     Route: 048
     Dates: start: 20090929, end: 20091124
  3. TASIGNA [Suspect]
     Active Substance: NILOTINIB
     Dosage: 300 MG, PER DAY
     Route: 048
     Dates: start: 20110719
  4. TASIGNA [Suspect]
     Active Substance: NILOTINIB
     Dosage: 800 MG, PER DAY
     Route: 048
     Dates: start: 20091216, end: 20100927
  5. TASIGNA [Suspect]
     Active Substance: NILOTINIB
     Dosage: 200 MG, PER DAY
     Route: 048
     Dates: start: 20110208, end: 20110718
  6. TANATRIL [Concomitant]
     Active Substance: IMIDAPRIL
     Indication: HYPERTENSION
     Dosage: 5 MG, UNK
     Route: 048
     Dates: start: 20090324
  7. TASIGNA [Suspect]
     Active Substance: NILOTINIB
     Dosage: 600 MG, PER DAY
     Route: 048
     Dates: start: 20091125, end: 20091215
  8. TASIGNA [Suspect]
     Active Substance: NILOTINIB
     Dosage: 600 MG, PER DAY
     Route: 048
     Dates: start: 20100928, end: 20110207
  9. ULCERLMIN [Concomitant]
     Active Substance: SUCRALFATE
     Indication: GASTRIC ULCER
     Dosage: 3 DF, UNK
     Route: 048
     Dates: start: 20090324, end: 20091109
  10. TASIGNA [Suspect]
     Active Substance: NILOTINIB
     Indication: CHRONIC MYELOID LEUKAEMIA
     Dosage: 800 MG, PER DAY
     Route: 048
     Dates: start: 20090324, end: 20090826
  11. PARIET [Concomitant]
     Active Substance: RABEPRAZOLE SODIUM
     Indication: GASTRIC ULCER
     Dosage: 10 MG
     Route: 048
     Dates: start: 20090324, end: 20111107

REACTIONS (10)
  - Cardiac arrest [Unknown]
  - Squamous cell carcinoma [Recovered/Resolved]
  - Blood lactate dehydrogenase increased [Unknown]
  - Atrioventricular block complete [Unknown]
  - Monocyte percentage increased [Unknown]
  - Aspartate aminotransferase increased [Unknown]
  - Bilirubin conjugated increased [Unknown]
  - Blood alkaline phosphatase increased [Unknown]
  - Second primary malignancy [Recovered/Resolved]
  - Neoplasm recurrence [Recovered/Resolved]

NARRATIVE: CASE EVENT DATE: 20090625
